FAERS Safety Report 12013190 (Version 1)
Quarter: 2016Q1

REPORT INFORMATION
  Report Type: Spontaneous
  Country: US (occurrence: US)
  Receive Date: 20160205
  Receipt Date: 20160205
  Transmission Date: 20160526
  Serious: No
  Sender: FDA-Public Use
  Company Number: US-IPCA LABORATORIES LIMITED-IPC201505-000353

PATIENT
  Sex: Male

DRUGS (2)
  1. ATACAND [Concomitant]
     Active Substance: CANDESARTAN CILEXETIL
  2. ATENOLOL. [Suspect]
     Active Substance: ATENOLOL
     Route: 048

REACTIONS (2)
  - Pain in extremity [Not Recovered/Not Resolved]
  - Breast pain [Not Recovered/Not Resolved]
